FAERS Safety Report 12614115 (Version 1)
Quarter: 2016Q3

REPORT INFORMATION
  Report Type: Spontaneous
  Country: US (occurrence: None)
  Receive Date: 20160801
  Receipt Date: 20160801
  Transmission Date: 20161109
  Serious: No
  Sender: FDA-Public Use
  Company Number: None

PATIENT
  Age: 54 Year
  Sex: Female
  Weight: 54.89 kg

DRUGS (8)
  1. ZANAFLEX [Concomitant]
     Active Substance: TIZANIDINE HYDROCHLORIDE
  2. HORIZANT [Suspect]
     Active Substance: GABAPENTIN ENACARBIL
     Indication: RESTLESS LEGS SYNDROME
     Route: 048
     Dates: start: 20160704, end: 20160724
  3. TYLENOL [Concomitant]
     Active Substance: ACETAMINOPHEN
  4. CLONAZEPAM. [Concomitant]
     Active Substance: CLONAZEPAM
  5. HYCOSAMINE [Concomitant]
  6. MAGNESIUM [Concomitant]
     Active Substance: MAGNESIUM
  7. VITAMIN C [Concomitant]
     Active Substance: ASCORBIC ACID
  8. VITAMIN B6 [Concomitant]
     Active Substance: PYRIDOXINE HYDROCHLORIDE

REACTIONS (9)
  - Irritability [None]
  - Panic attack [None]
  - Tremor [None]
  - Depression [None]
  - Feeling abnormal [None]
  - Insomnia [None]
  - Depressed mood [None]
  - Intentional self-injury [None]
  - Pain in extremity [None]

NARRATIVE: CASE EVENT DATE: 20160716
